FAERS Safety Report 10342755 (Version 2)
Quarter: 2015Q1

REPORT INFORMATION
  Report Type: Spontaneous
  Country: US (occurrence: None)
  Receive Date: 20140723
  Receipt Date: 20150220
  Transmission Date: 20150720
  Serious: Yes (Other)
  Sender: FDA-Public Use
  Company Number: 201407044

PATIENT
  Age: 52 Year
  Sex: Male
  Weight: 112.95 kg

DRUGS (8)
  1. RISPERIDONE. [Concomitant]
     Active Substance: RISPERIDONE
  2. TESTIM [Suspect]
     Active Substance: TESTOSTERONE
     Indication: BLOOD TESTOSTERONE DECREASED
     Dates: start: 20110117, end: 20120415
  3. BYSTOLIC [Concomitant]
     Active Substance: NEBIVOLOL HYDROCHLORIDE
  4. BUSPAR (BUSPIRONE HYDROCHLORIDE) [Concomitant]
  5. XANAX [Concomitant]
     Active Substance: ALPRAZOLAM
  6. HYDROCHLOROTHIAZIDE. [Concomitant]
     Active Substance: HYDROCHLOROTHIAZIDE
  7. SEROQUEL [Concomitant]
     Active Substance: QUETIAPINE FUMARATE
  8. PROZAC [Concomitant]
     Active Substance: FLUOXETINE HYDROCHLORIDE

REACTIONS (8)
  - Economic problem [None]
  - Deep vein thrombosis [None]
  - Multiple injuries [None]
  - Pain [None]
  - Anxiety [None]
  - Pulmonary embolism [None]
  - Dyspnoea [None]
  - Anhedonia [None]

NARRATIVE: CASE EVENT DATE: 20131006
